FAERS Safety Report 13924109 (Version 1)
Quarter: 2017Q3

REPORT INFORMATION
  Report Type: Spontaneous
  Country: US (occurrence: None)
  Receive Date: 20170830
  Receipt Date: 20170830
  Transmission Date: 20171127
  Serious: Yes (Hospitalization)
  Sender: FDA-Public Use
  Company Number: None

PATIENT
  Age: 66 Year
  Sex: Male
  Weight: 104 kg

DRUGS (1)
  1. DOFETILIDE. [Suspect]
     Active Substance: DOFETILIDE
     Indication: ATRIAL FIBRILLATION
     Route: 048
     Dates: start: 20130222, end: 20170809

REACTIONS (5)
  - Treatment failure [None]
  - Palpitations [None]
  - Tachycardia [None]
  - Chest discomfort [None]
  - Atrial fibrillation [None]

NARRATIVE: CASE EVENT DATE: 20170811
